FAERS Safety Report 9998898 (Version 3)
Quarter: 2014Q2

REPORT INFORMATION
  Report Type: Spontaneous
  Country: US (occurrence: US)
  Receive Date: 20140312
  Receipt Date: 20140414
  Transmission Date: 20141212
  Serious: Yes (Hospitalization)
  Sender: FDA-Public Use
  Company Number: US-BRISTOL-MYERS SQUIBB COMPANY-20371183

PATIENT
  Age: 69 Year
  Sex: Male
  Weight: 88.89 kg

DRUGS (3)
  1. ELIQUIS [Suspect]
     Indication: ATRIAL FIBRILLATION
     Dosage: LAST DOSE:18 OR 19TH FEB
  2. ASPIRIN [Concomitant]
  3. COREG [Concomitant]

REACTIONS (1)
  - Coronary artery occlusion [Unknown]
